FAERS Safety Report 8874132 (Version 1)
Quarter: 2012Q4

REPORT INFORMATION
  Report Type: 
  Country: US (occurrence: US)
  Receive Date: 20121031
  Receipt Date: 20121031
  Transmission Date: 20130627
  Serious: Yes (Hospitalization, Other)
  Sender: FDA-Public Use
  Company Number: US-PFIZER INC-2012270114

PATIENT
  Age: 54 Year
  Sex: Male

DRUGS (18)
  1. ATENOLOL [Suspect]
     Indication: BLOOD PRESSURE HIGH
     Dosage: 50 mg, daily
     Route: 048
     Dates: start: 201210
  2. NEXIUM [Suspect]
     Indication: ACID REFLUX (ESOPHAGEAL)
     Dosage: 40 mg, daily
     Route: 048
     Dates: start: 201205, end: 201209
  3. NEXIUM [Suspect]
     Dosage: 40 mg, daily
     Route: 048
     Dates: start: 201209
  4. SEROQUEL [Suspect]
     Indication: ALCOHOL USE
     Dosage: 25 mg, QAM and 50 mg, HS
     Route: 048
     Dates: start: 20100510
  5. PRILOSEC [Suspect]
     Indication: ACID REFLUX (ESOPHAGEAL)
     Dosage: 20 mg, 2x/day
     Route: 048
     Dates: start: 2010
  6. LISINOPRIL [Suspect]
     Indication: BLOOD PRESSURE HIGH
     Dosage: 20 mg, daily
     Route: 048
     Dates: start: 201204, end: 201209
  7. LISINOPRIL [Suspect]
     Dosage: 20 mg, daily
     Route: 048
     Dates: start: 201209
  8. THIAMINE [Concomitant]
     Indication: SUPPLEMENTATION THERAPY
     Dosage: 100 mg, QAM
     Dates: start: 201210
  9. OXYCONTIN [Concomitant]
     Indication: PAIN
     Dosage: 5 MG/ 325 MG, AS NEEDED
     Dates: start: 201210
  10. ALBUTEROL [Concomitant]
     Indication: BREATHING DIFFICULT
     Dosage: 3 MG, 2 PUFFS QID
     Route: 045
     Dates: start: 201204
  11. AMLODIPINE [Concomitant]
     Indication: BLOOD PRESSURE HIGH
     Dosage: 5 mg, daily
     Dates: start: 201210
  12. ATORVASTATIN [Concomitant]
     Dosage: 80 mg, daily
     Dates: start: 201210
  13. CLOPIDOGREL [Concomitant]
     Indication: ANTICOAGULANT THERAPY
     Dosage: 75 mg, HS
     Dates: start: 201210
  14. FOLIC ACID [Concomitant]
     Indication: ALCOHOL ABUSE
     Dosage: 1 mg, daily
     Route: 048
     Dates: start: 201204, end: 201209
  15. FOLIC ACID [Concomitant]
     Dosage: 1 mg, daily
     Route: 050
     Dates: start: 201209
  16. METOCLOPRAMIDE [Concomitant]
     Indication: ENTERAL FEEDING
     Dosage: 10 mg, 3x/day
     Route: 050
     Dates: start: 201210, end: 20121015
  17. METOCLOPRAMIDE [Concomitant]
     Dosage: 10 mg, QID
     Route: 050
     Dates: start: 20121015
  18. PROMOD [Concomitant]

REACTIONS (7)
  - Cerebrovascular accident [Recovered/Resolved]
  - Coronary artery occlusion [Recovered/Resolved]
  - Pneumonia [Unknown]
  - Blood pressure abnormal [Unknown]
  - Dysphagia [Unknown]
  - Off label use [Unknown]
  - Drug ineffective [Unknown]
